FAERS Safety Report 5720411-1 (Version None)
Quarter: 2008Q2

REPORT INFORMATION
  Report Type: 
  Country: None (occurrence: None)
  Receive Date: 20080428
  Receipt Date: 20080421
  Transmission Date: 20081010
  Serious: Yes (Other)
  Sender: FDA-Public Use
  Company Number: US-BOEHRINGER INGELHEIM GMBH, GERMANY-2008-BP-00564BP

PATIENT
  Sex: Male

DRUGS (5)
  1. FLOMAX [Suspect]
     Indication: BENIGN PROSTATIC HYPERPLASIA
     Route: 048
     Dates: start: 20030101
  2. FLOMAX [Suspect]
     Indication: URINARY TRACT DISORDER
  3. FLOVENT [Concomitant]
  4. AVODART [Concomitant]
     Indication: BENIGN PROSTATIC HYPERPLASIA
  5. BECONASE [Concomitant]

REACTIONS (13)
  - BACK PAIN [None]
  - BLINDNESS UNILATERAL [None]
  - CATARACT [None]
  - EYE DISORDER [None]
  - EYE PAIN [None]
  - GLARE [None]
  - INTRAOCULAR PRESSURE INCREASED [None]
  - IRIS DISORDER [None]
  - MUSCULOSKELETAL STIFFNESS [None]
  - PUPILLARY DISORDER [None]
  - RASH [None]
  - VESSEL PUNCTURE SITE HAEMATOMA [None]
  - VISION BLURRED [None]
